FAERS Safety Report 8093751-1 (Version None)
Quarter: 2012Q1

REPORT INFORMATION
  Report Type: 
  Country: None (occurrence: None)
  Receive Date: 20120129
  Receipt Date: 20111014
  Transmission Date: 20120608
  Serious: No
  Sender: FDA-Public Use
  Company Number: US-ABBOTT-11P-163-0865850-00

PATIENT
  Sex: Female
  Weight: 77.18 kg

DRUGS (3)
  1. HUMIRA [Suspect]
     Indication: PSORIASIS
     Dates: start: 20090401, end: 20110301
  2. VITAMIN TAB [Concomitant]
     Indication: VITAMIN SUPPLEMENTATION
  3. ZYRTEC [Concomitant]
     Indication: HYPERSENSITIVITY

REACTIONS (2)
  - INSOMNIA [None]
  - PSORIASIS [None]
